FAERS Safety Report 9123121 (Version 1)
Quarter: 2013Q1

REPORT INFORMATION
  Report Type: Spontaneous
  Country: GB (occurrence: GB)
  Receive Date: 20130115
  Receipt Date: 20130115
  Transmission Date: 20140127
  Serious: Yes (Life-Threatening, Hospitalization, Disabling)
  Sender: FDA-Public Use
  Company Number: GB-SP-2013-00658

PATIENT
  Age: 58 Year
  Sex: Male

DRUGS (1)
  1. BCG  THERAPEUTICS [Suspect]
     Indication: BLADDER CANCER
     Dosage: 6 DF 1/6 WEEKS
     Route: 043
     Dates: start: 20121208, end: 20121231

REACTIONS (13)
  - Bovine tuberculosis [Not Recovered/Not Resolved]
  - Bovine tuberculosis [Not Recovered/Not Resolved]
  - Dyspnoea [Not Recovered/Not Resolved]
  - Pneumonia [Unknown]
  - Jaundice [Unknown]
  - Body temperature increased [Unknown]
  - Malaise [Unknown]
  - Weight decreased [Unknown]
  - Malaise [Not Recovered/Not Resolved]
  - White blood cell count decreased [Unknown]
  - Medical device complication [Unknown]
  - Epistaxis [Unknown]
  - Rectal haemorrhage [Unknown]
